FAERS Safety Report 15634018 (Version 1)
Quarter: 2018Q4

REPORT INFORMATION
  Report Type: Spontaneous
  Country: US (occurrence: US)
  Receive Date: 20181119
  Receipt Date: 20181119
  Transmission Date: 20190205
  Serious: Yes (Other)
  Sender: FDA-Public Use
  Company Number: PHHY2018US153336

PATIENT
  Age: 35 Year
  Sex: Female

DRUGS (1)
  1. NITROFURANTOIN. [Suspect]
     Active Substance: NITROFURANTOIN
     Indication: URINARY TRACT INFECTION
     Dosage: UNK
     Route: 065

REACTIONS (8)
  - Suprapubic pain [Unknown]
  - Dysuria [Unknown]
  - Ovarian mass [Unknown]
  - Dermoid cyst [Unknown]
  - Urinary hesitation [Unknown]
  - Inflammation [Unknown]
  - Pollakiuria [Unknown]
  - Maternal exposure during pregnancy [Unknown]
